FAERS Safety Report 16538893 (Version 3)
Quarter: 2019Q3

REPORT INFORMATION
  Report Type: Report from Study
  Country: IL (occurrence: IL)
  Receive Date: 20190708
  Receipt Date: 20190730
  Transmission Date: 20191004
  Serious: Yes (Hospitalization, Other)
  Sender: FDA-Public Use
  Company Number: IL-EMD SERONO-9102476

PATIENT
  Sex: Female

DRUGS (1)
  1. REBIF [Suspect]
     Active Substance: INTERFERON BETA-1A
     Indication: RELAPSING-REMITTING MULTIPLE SCLEROSIS
     Route: 065

REACTIONS (4)
  - Premature rupture of membranes [Recovered/Resolved]
  - Live birth [Recovered/Resolved]
  - Staphylococcal infection [Recovered/Resolved]
  - Paternal exposure timing unspecified [Recovered/Resolved]

NARRATIVE: CASE EVENT DATE: 2018
